FAERS Safety Report 5026370-1 (Version None)
Quarter: 2006Q2

REPORT INFORMATION
  Report Type: 
  Country: None (occurrence: None)
  Receive Date: 20060608
  Receipt Date: 20030520
  Transmission Date: 20061013
  Serious: No
  Sender: FDA-Public Use
  Company Number: 2003-05-1048

PATIENT
  Sex: Male
  Weight: 91 kg

DRUGS (2)
  1. ETHYOL [Suspect]
     Indication: PROPHYLAXIS
     Dosage: SUBCUTANEOUS
     Route: 058
     Dates: start: 20030324, end: 20030404
  2. RADIATION THERAPY [Suspect]
     Indication: PROPHYLAXIS
     Dosage: OTHER
     Route: 050

REACTIONS (4)
  - PHARYNGOLARYNGEAL PAIN [None]
  - RASH PRURITIC [None]
  - SWELLING FACE [None]
  - TOXIC EPIDERMAL NECROLYSIS [None]
